FAERS Safety Report 7504772-9 (Version None)
Quarter: 2011Q2

REPORT INFORMATION
  Report Type: 
  Country: None (occurrence: None)
  Receive Date: 20110525
  Receipt Date: 20110307
  Transmission Date: 20111010
  Serious: No
  Sender: FDA-Public Use
  Company Number: US-AMGEN-USASP2011007907

PATIENT
  Age: 72 Year
  Sex: Male

DRUGS (2)
  1. PROCRIT [Suspect]
     Indication: RENAL FAILURE CHRONIC
     Dosage: UNK
  2. ARANESP [Suspect]
     Indication: RENAL FAILURE CHRONIC
     Dosage: 80 A?G, QWK
     Route: 058
     Dates: start: 20110105, end: 20110127

REACTIONS (1)
  - ASTHENIA [None]
